FAERS Safety Report 10473821 (Version 2)
Quarter: 2014Q4

REPORT INFORMATION
  Report Type: Spontaneous
  Country: US (occurrence: US)
  Receive Date: 20140924
  Receipt Date: 20141122
  Transmission Date: 20150528
  Serious: No
  Sender: FDA-Public Use
  Company Number: US-009507513-1409USA008474

PATIENT
  Age: 20 Year
  Sex: Female
  Weight: 68.48 kg

DRUGS (1)
  1. NEXPLANON [Suspect]
     Active Substance: ETONOGESTREL
     Indication: CONTRACEPTION
     Dosage: UNK
     Dates: start: 20140828, end: 2014

REACTIONS (6)
  - Pain [Unknown]
  - Device difficult to use [Recovered/Resolved]
  - Product quality issue [Unknown]
  - Device dislocation [Recovered/Resolved]
  - No adverse event [Unknown]
  - Device deployment issue [Recovered/Resolved]

NARRATIVE: CASE EVENT DATE: 2014
